FAERS Safety Report 18022273 (Version 2)
Quarter: 2025Q1

REPORT INFORMATION
  Report Type: Spontaneous
  Country: US (occurrence: US)
  Receive Date: 20200714
  Receipt Date: 20250321
  Transmission Date: 20250409
  Serious: Yes (Death, Other)
  Sender: PURDUE
  Company Number: US-PURDUE-USA-2020-0155564

PATIENT
  Age: 28 Year
  Sex: Male

DRUGS (32)
  1. OXYCONTIN [Suspect]
     Active Substance: OXYCODONE HYDROCHLORIDE
     Indication: Pain
     Dosage: 80 MG
     Route: 048
     Dates: start: 20091228
  2. OXYCONTIN [Suspect]
     Active Substance: OXYCODONE HYDROCHLORIDE
     Dosage: 80 MILLIGRAM, TID
     Route: 048
  3. OXYCODONE HYDROCHLORIDE [Suspect]
     Active Substance: OXYCODONE HYDROCHLORIDE
     Indication: Pain
     Route: 048
  4. OXYCODONE HYDROCHLORIDE [Suspect]
     Active Substance: OXYCODONE HYDROCHLORIDE
     Route: 048
  5. OXYCODONE HYDROCHLORIDE [Suspect]
     Active Substance: OXYCODONE HYDROCHLORIDE
     Route: 048
  6. OXYCODONE HYDROCHLORIDE [Suspect]
     Active Substance: OXYCODONE HYDROCHLORIDE
     Route: 048
  7. OXYCODONE HYDROCHLORIDE [Suspect]
     Active Substance: OXYCODONE HYDROCHLORIDE
     Indication: Product used for unknown indication
     Route: 048
  8. HYDROMORPHONE [Suspect]
     Active Substance: HYDROMORPHONE
     Indication: Product used for unknown indication
     Route: 048
  9. HYDROCODONE BITARTRATE AND ACETAMINOPHEN [Suspect]
     Active Substance: ACETAMINOPHEN\HYDROCODONE BITARTRATE
     Indication: Product used for unknown indication
     Route: 048
  10. HYDROCODONE BITARTRATE AND ACETAMINOPHEN [Suspect]
     Active Substance: ACETAMINOPHEN\HYDROCODONE BITARTRATE
     Route: 048
  11. NORCO [Suspect]
     Active Substance: ACETAMINOPHEN\HYDROCODONE BITARTRATE
     Indication: Pain
     Dosage: 10/325 MG
     Route: 065
  12. NORCO [Suspect]
     Active Substance: ACETAMINOPHEN\HYDROCODONE BITARTRATE
     Dosage: 10/325 MG, TID
     Route: 065
  13. OXYMORPHONE [Suspect]
     Active Substance: OXYMORPHONE
     Indication: Pain
     Route: 065
  14. CARISOPRODOL [Suspect]
     Active Substance: CARISOPRODOL
     Indication: Pain
     Route: 065
  15. CARISOPRODOL [Suspect]
     Active Substance: CARISOPRODOL
     Route: 065
  16. LEVORPHANOL [Suspect]
     Active Substance: LEVORPHANOL
     Indication: Product used for unknown indication
     Route: 065
  17. DOXYLAMINE [Suspect]
     Active Substance: DOXYLAMINE
     Indication: Product used for unknown indication
     Route: 065
  18. DIAZEPAM [Suspect]
     Active Substance: DIAZEPAM
     Indication: Product used for unknown indication
     Route: 065
  19. DIAZEPAM [Suspect]
     Active Substance: DIAZEPAM
     Route: 065
  20. ALPRAZOLAM [Concomitant]
     Active Substance: ALPRAZOLAM
     Indication: Product used for unknown indication
     Route: 048
  21. ALPRAZOLAM [Concomitant]
     Active Substance: ALPRAZOLAM
     Route: 048
  22. CIPRODEX                           /00697202/ [Concomitant]
     Indication: Product used for unknown indication
     Route: 065
  23. ROBITUSSIN DM                      /00288801/ [Concomitant]
     Indication: Product used for unknown indication
     Route: 065
  24. PROVENTIL [Concomitant]
     Active Substance: ALBUTEROL
     Indication: Product used for unknown indication
     Route: 065
  25. PROVENTIL [Concomitant]
     Active Substance: ALBUTEROL
     Route: 055
  26. MEDROL [Concomitant]
     Active Substance: METHYLPREDNISOLONE
     Indication: Product used for unknown indication
     Route: 065
  27. ADVAIR HFA [Concomitant]
     Active Substance: FLUTICASONE PROPIONATE\SALMETEROL XINAFOATE
     Indication: Product used for unknown indication
     Route: 065
  28. ADVAIR HFA [Concomitant]
     Active Substance: FLUTICASONE PROPIONATE\SALMETEROL XINAFOATE
     Route: 055
  29. VALIUM [Concomitant]
     Active Substance: DIAZEPAM
     Indication: Pain
     Route: 065
  30. SOMA [Concomitant]
     Active Substance: CARISOPRODOL
     Indication: Pain
     Route: 065
  31. SOMA [Concomitant]
     Active Substance: CARISOPRODOL
     Route: 065
  32. OMNICEF                            /00497602/ [Concomitant]
     Indication: Product used for unknown indication
     Route: 065

REACTIONS (17)
  - Toxicity to various agents [Fatal]
  - Pulmonary oedema [Unknown]
  - Ligament sprain [Unknown]
  - Overdose [Unknown]
  - Drug abuse [Unknown]
  - Drug dependence [Unknown]
  - Bronchitis [Unknown]
  - Tonsillitis [Unknown]
  - Asthma [Unknown]
  - Localised infection [Unknown]
  - Intervertebral disc protrusion [Unknown]
  - Cough [Unknown]
  - Cardiomegaly [Unknown]
  - Hepatosplenomegaly [Unknown]
  - Pain [Unknown]
  - Anxiety [Unknown]
  - Insomnia [Unknown]

NARRATIVE: CASE EVENT DATE: 20100113
